FAERS Safety Report 7510454-X (Version None)
Quarter: 2011Q2

REPORT INFORMATION
  Report Type: 
  Country: None (occurrence: None)
  Receive Date: 20110527
  Receipt Date: 20110513
  Transmission Date: 20111010
  Serious: Yes (Other)
  Sender: FDA-Public Use
  Company Number: US-AMGEN-USASP2011020281

PATIENT
  Age: 48 Year
  Sex: Female
  Weight: 87.528 kg

DRUGS (8)
  1. BENADRYL [Concomitant]
  2. PROCHLORPERAZINE MALEATE [Concomitant]
     Dosage: 10 MG, UNK
  3. PERCOCET [Concomitant]
  4. XGEVA [Suspect]
     Indication: METASTASES TO BONE
     Dosage: 120 MG, QMO
     Route: 058
     Dates: start: 20110415
  5. PEPCID [Concomitant]
  6. ATIVAN [Concomitant]
     Dosage: 0.5 MG, UNK
  7. TAXOL [Concomitant]
     Dosage: UNK UNK, QWK
     Dates: start: 20110408
  8. TYLENOL (CAPLET) [Concomitant]

REACTIONS (2)
  - INCORRECT ROUTE OF DRUG ADMINISTRATION [None]
  - WRONG DRUG ADMINISTERED [None]
